FAERS Safety Report 18056165 (Version 3)
Quarter: 2020Q3

REPORT INFORMATION
  Report Type: Report from Study
  Country: CA (occurrence: CA)
  Receive Date: 20200722
  Receipt Date: 20200921
  Transmission Date: 20201103
  Serious: Yes (Death, Hospitalization)
  Sender: FDA-Public Use
  Company Number: CA-JNJFOC-20200625710

PATIENT
  Age: 85 Year
  Sex: Female
  Weight: 113 kg

DRUGS (1)
  1. REMICADE [Suspect]
     Active Substance: INFLIXIMAB
     Indication: CROHN^S DISEASE
     Route: 042
     Dates: start: 20030201

REACTIONS (5)
  - Glioblastoma [Fatal]
  - Amnesia [Not Recovered/Not Resolved]
  - Cough [Recovering/Resolving]
  - Cellulitis [Unknown]
  - Dehydration [Unknown]

NARRATIVE: CASE EVENT DATE: 2020
